FAERS Safety Report 25482320 (Version 1)
Quarter: 2025Q2

REPORT INFORMATION
  Report Type: Report from Study
  Country: CL (occurrence: CL)
  Receive Date: 20250626
  Receipt Date: 20250626
  Transmission Date: 20250716
  Serious: Yes (Other)
  Sender: TAKEDA
  Company Number: CL-TAKEDA-2025TUS038577

PATIENT
  Age: 8 Year
  Sex: Male

DRUGS (3)
  1. IDURSULFASE [Suspect]
     Active Substance: IDURSULFASE
     Indication: Enzyme supplementation
     Dosage: 0.5 MILLIGRAM/KILOGRAM, 1/WEEK
  2. IDURSULFASE [Suspect]
     Active Substance: IDURSULFASE
     Dosage: 12 MILLIGRAM, 1/WEEK
  3. IDURSULFASE [Suspect]
     Active Substance: IDURSULFASE
     Dosage: 0.5 MILLIGRAM/KILOGRAM, 1/WEEK

REACTIONS (12)
  - Asphyxia [Recovering/Resolving]
  - Illness [Unknown]
  - Productive cough [Recovering/Resolving]
  - Discouragement [Unknown]
  - Irritability [Recovering/Resolving]
  - Restlessness [Recovering/Resolving]
  - Respiratory tract congestion [Recovering/Resolving]
  - Lacrimation increased [Unknown]
  - Cough [Recovering/Resolving]
  - Dyspnoea [Unknown]
  - Pyrexia [Recovering/Resolving]
  - Vomiting [Recovering/Resolving]

NARRATIVE: CASE EVENT DATE: 20250416
